FAERS Safety Report 13347455 (Version 4)
Quarter: 2017Q2

REPORT INFORMATION
  Report Type: Report from Study
  Country: FR (occurrence: FR)
  Receive Date: 20170317
  Receipt Date: 20170616
  Transmission Date: 20170830
  Serious: Yes (Hospitalization, Other)
  Sender: FDA-Public Use
  Company Number: FR-SEATTLE GENETICS-2017SGN00371

PATIENT
  Age: 50 Year
  Sex: Male
  Weight: 53 kg

DRUGS (6)
  1. BRENTUXIMAB VEDOTIN [Suspect]
     Active Substance: BRENTUXIMAB VEDOTIN
     Dosage: 60 MG, UNK
     Route: 065
     Dates: start: 20170124
  2. BRENTUXIMAB VEDOTIN [Suspect]
     Active Substance: BRENTUXIMAB VEDOTIN
     Dosage: 60 MG, UNK
     Route: 042
     Dates: start: 20161209, end: 20170221
  3. GEMCITABINE [Concomitant]
     Active Substance: GEMCITABINE\GEMCITABINE HYDROCHLORIDE
     Indication: LYMPHOMA
     Dosage: UNK
     Route: 042
     Dates: start: 20161202
  4. VINORELBINE [Concomitant]
     Active Substance: VINORELBINE\VINORELBINE TARTRATE
     Indication: LYMPHOMA
     Dosage: UNK
     Route: 042
     Dates: start: 20161202
  5. DOXORUBICIN [Concomitant]
     Active Substance: DOXORUBICIN
     Indication: LYMPHOMA
     Dosage: UNK
     Route: 042
     Dates: start: 20161202
  6. BRENTUXIMAB VEDOTIN [Suspect]
     Active Substance: BRENTUXIMAB VEDOTIN
     Indication: DIFFUSE LARGE B-CELL LYMPHOMA
     Dosage: 118 MG, UNK
     Route: 042
     Dates: start: 20161209

REACTIONS (15)
  - Pyrexia [Unknown]
  - Diffuse large B-cell lymphoma [Unknown]
  - Febrile bone marrow aplasia [Unknown]
  - Cholestasis [Unknown]
  - Escherichia bacteraemia [Unknown]
  - Weight decreased [Unknown]
  - Colitis [Unknown]
  - Toxicity to various agents [Unknown]
  - Diarrhoea [Recovered/Resolved]
  - Liver disorder [Unknown]
  - Dehydration [Recovered/Resolved]
  - General physical health deterioration [Recovered/Resolved]
  - Hyperbilirubinaemia [Unknown]
  - Sepsis [Unknown]
  - Off label use [Unknown]

NARRATIVE: CASE EVENT DATE: 20161212
